FAERS Safety Report 20390393 (Version 1)
Quarter: 2022Q1

REPORT INFORMATION
  Report Type: Spontaneous
  Country: US (occurrence: US)
  Receive Date: 20220128
  Receipt Date: 20220128
  Transmission Date: 20220424
  Serious: No
  Sender: FDA-Public Use
  Company Number: US-ALLERGAN-2136047US

PATIENT
  Sex: Female

DRUGS (3)
  1. BOTOX [Suspect]
     Active Substance: ONABOTULINUMTOXINA
     Indication: Product used for unknown indication
     Dosage: UNK UNK, SINGLE
  2. BOTOX [Suspect]
     Active Substance: ONABOTULINUMTOXINA
     Dosage: UNK UNK, SINGLE
  3. nerve blockers [Concomitant]

REACTIONS (11)
  - Emergency care [Unknown]
  - Asthma [Unknown]
  - Pulmonary mass [Unknown]
  - Gastric ulcer [Unknown]
  - Cholecystectomy [Unknown]
  - Arthritis [Unknown]
  - Pain [Unknown]
  - Temporomandibular joint syndrome [Unknown]
  - Sleep apnoea syndrome [Unknown]
  - Pregnancy [Unknown]
  - Drug ineffective [Unknown]
